FAERS Safety Report 9280893 (Version 1)
Quarter: 2013Q2

REPORT INFORMATION
  Report Type: Spontaneous
  Country: US (occurrence: US)
  Receive Date: 20130509
  Receipt Date: 20130509
  Transmission Date: 20140414
  Serious: No
  Sender: FDA-Public Use
  Company Number: US-009507513-1305USA003066

PATIENT
  Age: 19 Year
  Sex: Female
  Weight: 61.22 kg

DRUGS (2)
  1. NEXPLANON [Suspect]
     Indication: CONTRACEPTION
     Dosage: EVERY 3 YEARS, 1 ROD
     Route: 059
     Dates: start: 20130412
  2. ALBUTEROL [Concomitant]

REACTIONS (3)
  - Back pain [Unknown]
  - Mood swings [Unknown]
  - Menstruation irregular [Unknown]
